FAERS Safety Report 15982766 (Version 1)
Quarter: 2019Q1

REPORT INFORMATION
  Report Type: Spontaneous
  Country: FR (occurrence: FR)
  Receive Date: 20190219
  Receipt Date: 20190219
  Transmission Date: 20190418
  Serious: Yes (Other)
  Sender: FDA-Public Use
  Company Number: FR-PFIZER INC-2019064059

PATIENT
  Age: 28 Year
  Sex: Male

DRUGS (7)
  1. VALIUM [Suspect]
     Active Substance: DIAZEPAM
     Dosage: 30 MG, 1X/DAY
     Route: 048
  2. ARTANE [Suspect]
     Active Substance: TRIHEXYPHENIDYL HYDROCHLORIDE
     Route: 048
  3. LYRICA [Suspect]
     Active Substance: PREGABALIN
     Dosage: 600 MG, DAILY
     Route: 048
  4. SERESTA [Suspect]
     Active Substance: OXAZEPAM
     Route: 048
  5. TRANXENE [Suspect]
     Active Substance: CLORAZEPATE DIPOTASSIUM
     Route: 048
  6. LEXOMIL [Suspect]
     Active Substance: BROMAZEPAM
     Dosage: 6 MG, 1X/DAY
     Route: 048
  7. RIVOTRIL [Suspect]
     Active Substance: CLONAZEPAM
     Route: 048

REACTIONS (2)
  - Drug dependence [Not Recovered/Not Resolved]
  - Withdrawal syndrome [Not Recovered/Not Resolved]
